FAERS Safety Report 5388038-1 (Version None)
Quarter: 2007Q3

REPORT INFORMATION
  Report Type: 
  Country: None (occurrence: None)
  Receive Date: 20070716
  Receipt Date: 20070709
  Transmission Date: 20080115
  Serious: Yes (Other)
  Sender: FDA-Public Use
  Company Number: PHEH2007US05453

PATIENT
  Age: 55 Year
  Sex: Female
  Weight: 69.841 kg

DRUGS (11)
  1. ZELNORM [Suspect]
     Indication: IMPAIRED GASTRIC EMPTYING
     Dosage: UNK, QD
     Route: 048
     Dates: start: 20050101
  2. LITHIUM CARBONATE [Concomitant]
     Indication: BIPOLAR I DISORDER
  3. REGULAR INSULIN [Concomitant]
     Indication: DIABETES MELLITUS
  4. INSULIN [Concomitant]
     Indication: DIABETES MELLITUS
  5. VIVELLE-DOT [Concomitant]
  6. PARLODEL [Concomitant]
  7. NEURONTIN [Concomitant]
  8. REGLAN [Concomitant]
  9. LEVSIN [Concomitant]
  10. LEXAPRO [Concomitant]
     Dosage: 2 MG, UNK
  11. ASPIRIN [Concomitant]
     Dosage: 325 MG, UNK

REACTIONS (11)
  - ARTHRALGIA [None]
  - CHEST PAIN [None]
  - DEPRESSION [None]
  - DIZZINESS [None]
  - DYSPNOEA [None]
  - FALL [None]
  - HYPERCALCAEMIA [None]
  - HYPERCHOLESTEROLAEMIA [None]
  - HYPOTHYROIDISM [None]
  - ORTHOSTATIC HYPOTENSION [None]
  - STOMACH DISCOMFORT [None]
